FAERS Safety Report 8021009-5 (Version None)
Quarter: 2011Q4

REPORT INFORMATION
  Report Type: 
  Country: None (occurrence: None)
  Receive Date: 20111228
  Receipt Date: 20111216
  Transmission Date: 20120403
  Serious: Yes (Life-Threatening, Hospitalization)
  Sender: FDA-Public Use
  Company Number: 2011MA017956

PATIENT
  Age: 40 Year
  Sex: Male

DRUGS (8)
  1. FLUOXETINE [Suspect]
     Indication: ANXIETY
     Dosage: 20 MG; ;PO
     Route: 048
     Dates: start: 20111003
  2. ASPIRIN [Concomitant]
  3. LANSOPRAZOLE [Concomitant]
  4. DOXAZOSIN MESYLATE [Concomitant]
  5. PEPTAC [Concomitant]
  6. FELODIPINE [Concomitant]
  7. EPROSARTAN [Concomitant]
  8. VARENICLINE [Suspect]
     Indication: SMOKING CESSATION THERAPY
     Dosage: ;PO
     Route: 048

REACTIONS (5)
  - INTESTINAL ISCHAEMIA [None]
  - EMBOLISM [None]
  - RENAL ISCHAEMIA [None]
  - PERIPHERAL ISCHAEMIA [None]
  - UNEVALUABLE EVENT [None]
